FAERS Safety Report 7790072-9 (Version None)
Quarter: 2011Q3

REPORT INFORMATION
  Report Type: 
  Country: None (occurrence: None)
  Receive Date: 20110930
  Receipt Date: 20110503
  Transmission Date: 20111222
  Serious: No
  Sender: FDA-Public Use
  Company Number: US-ASTRAZENECA-2010SE57099

PATIENT
  Age: 70 Year
  Sex: Female
  Weight: 63.5 kg

DRUGS (4)
  1. PULMICORT FLEXHALER [Suspect]
     Indication: COUGH
     Dosage: TWO TIMES A DAY
     Route: 055
  2. FELODIPINE [Concomitant]
     Indication: HYPERTENSION
  3. ARIMIDEX [Suspect]
     Indication: BREAST CANCER
     Route: 048
  4. ZOCOR [Concomitant]
     Indication: HYPERCHOLESTEROLAEMIA

REACTIONS (5)
  - DRUG INEFFECTIVE [None]
  - WEIGHT DECREASED [None]
  - COUGH [None]
  - RENAL CYST [None]
  - DYSGEUSIA [None]
